FAERS Safety Report 19944079 (Version 1)
Quarter: 2021Q4

REPORT INFORMATION
  Report Type: Spontaneous
  Country: CA (occurrence: CA)
  Receive Date: 20211012
  Receipt Date: 20211012
  Transmission Date: 20220303
  Serious: Yes (Other)
  Sender: FDA-Public Use
  Company Number: CA-TEVA-2021-CA-1963627

PATIENT
  Age: 81 Year
  Sex: Female

DRUGS (1)
  1. METHOTREXATE [Suspect]
     Active Substance: METHOTREXATE
     Indication: Rheumatoid arthritis
     Route: 065

REACTIONS (5)
  - Angiopathy [Recovered/Resolved]
  - Cutaneous vasculitis [Recovered/Resolved]
  - Infection [Recovered/Resolved]
  - Polyneuropathy [Recovered/Resolved]
  - Ulcer [Recovered/Resolved]
